FAERS Safety Report 20799466 (Version 2)
Quarter: 2022Q2

REPORT INFORMATION
  Report Type: Report from Study
  Country: US (occurrence: US)
  Receive Date: 20220508
  Receipt Date: 20220519
  Transmission Date: 20220720
  Serious: Yes (Hospitalization, Other)
  Sender: FDA-Public Use
  Company Number: US-BRISTOL-MYERS SQUIBB COMPANY-2022-031011

PATIENT
  Age: 72 Year
  Sex: Male

DRUGS (6)
  1. ORENCIA [Suspect]
     Active Substance: ABATACEPT
     Indication: Rheumatoid arthritis
     Dosage: DOSE : UNAVAILABLE;     FREQ : WEEKLY
     Route: 058
  2. ORENCIA [Suspect]
     Active Substance: ABATACEPT
     Dosage: ORENCIA CLICKJET USED ONLY ONCE
     Route: 065
  3. ORENCIA [Suspect]
     Active Substance: ABATACEPT
     Route: 065
  4. ORENCIA [Suspect]
     Active Substance: ABATACEPT
     Route: 065
  5. COVID-19 VACCINE [Concomitant]
     Indication: COVID-19
     Dates: start: 202103
  6. COVID-19 VACCINE [Concomitant]
     Dates: start: 202104

REACTIONS (7)
  - Atrial fibrillation [Not Recovered/Not Resolved]
  - COVID-19 [Not Recovered/Not Resolved]
  - Product storage error [Unknown]
  - Product temperature excursion issue [Unknown]
  - Injection site pain [Unknown]
  - Injection site extravasation [Unknown]
  - Product storage error [Unknown]

NARRATIVE: CASE EVENT DATE: 20210101
